FAERS Safety Report 16648741 (Version 6)
Quarter: 2019Q4

REPORT INFORMATION
  Report Type: Report from Study
  Country: DE (occurrence: DE)
  Receive Date: 20190730
  Receipt Date: 20191219
  Transmission Date: 20200122
  Serious: Yes (Death, Hospitalization)
  Sender: FDA-Public Use
  Company Number: DE-EXELIXIS-XL18419019389

PATIENT
  Age: 77 Year
  Sex: Male
  Weight: 110 kg

DRUGS (3)
  1. CABOZANTINIB [Suspect]
     Active Substance: CABOZANTINIB
     Dosage: 60 MG,QD
     Route: 048
     Dates: start: 20190131, end: 20190219
  2. CABOZANTINIB [Suspect]
     Active Substance: CABOZANTINIB
     Indication: RENAL CELL CARCINOMA
     Dosage: 60 MG, QD
     Route: 048
     Dates: start: 20181109, end: 20190120
  3. CABOZANTINIB [Suspect]
     Active Substance: CABOZANTINIB
     Dosage: 40 MG,QD
     Route: 048
     Dates: start: 20190221, end: 20190803

REACTIONS (8)
  - General physical health deterioration [Recovered/Resolved]
  - Ureterolithiasis [Recovered/Resolved]
  - Diarrhoea [Not Recovered/Not Resolved]
  - Cholecystitis acute [Recovered/Resolved]
  - Disease progression [Fatal]
  - Diarrhoea [Recovered/Resolved]
  - Diarrhoea [Recovered/Resolved]
  - Pleural effusion [Recovered/Resolved]

NARRATIVE: CASE EVENT DATE: 20190119
